FAERS Safety Report 12207628 (Version 1)
Quarter: 2016Q1

REPORT INFORMATION
  Report Type: Spontaneous
  Country: US (occurrence: US)
  Receive Date: 20160324
  Receipt Date: 20160324
  Transmission Date: 20160526
  Serious: No
  Sender: FDA-Public Use
  Company Number: US-009507513-1603USA008619

PATIENT
  Sex: Female

DRUGS (1)
  1. GRASTEK [Suspect]
     Active Substance: PHLEUM PRATENSE POLLEN
     Indication: SEASONAL ALLERGY
     Dosage: UNK
     Route: 060
     Dates: start: 20160314

REACTIONS (5)
  - Throat irritation [Unknown]
  - Oral pruritus [Unknown]
  - Feeling hot [Unknown]
  - Flushing [Unknown]
  - Glossodynia [Unknown]

NARRATIVE: CASE EVENT DATE: 20160314
